FAERS Safety Report 5379796-0 (Version None)
Quarter: 2007Q3

REPORT INFORMATION
  Report Type: 
  Country: None (occurrence: None)
  Receive Date: 20070703
  Receipt Date: 20050228
  Transmission Date: 20080115
  Serious: Yes (Hospitalization)
  Sender: FDA-Public Use
  Company Number: CHNY2005GB00462

PATIENT
  Age: 15 Month
  Sex: Female

DRUGS (3)
  1. IBUPROFEN [Suspect]
     Indication: PYREXIA
     Dosage: 5 MG/KG, QD, ORAL
     Route: 048
  2. PARACETAMOL (NGX)(PARACETAMOL) UNKNOWN [Suspect]
     Indication: PYREXIA
     Dosage: 15 MG/KG, QD, ORAL
     Route: 048
  3. CEFUROXIME [Concomitant]

REACTIONS (3)
  - HYPOTHERMIA [None]
  - LOBAR PNEUMONIA [None]
  - SEPSIS [None]
